FAERS Safety Report 10803394 (Version 2)
Quarter: 2015Q1

REPORT INFORMATION
  Report Type: Spontaneous
  Country: DE (occurrence: DE)
  Receive Date: 20150217
  Receipt Date: 20150304
  Transmission Date: 20150721
  Serious: Yes (Other)
  Sender: FDA-Public Use
  Company Number: DE-TEVA-541289GER

PATIENT
  Age: 4 Decade
  Sex: Female

DRUGS (2)
  1. ESTREVA 0,1% GEL [Suspect]
     Active Substance: ESTRADIOL
     Indication: HORMONE THERAPY
  2. ESTREVA 0,1% GEL [Suspect]
     Active Substance: ESTRADIOL
     Indication: OVARIAN FAILURE
     Route: 003

REACTIONS (1)
  - Porphyria acute [Unknown]

NARRATIVE: CASE EVENT DATE: 201412
